FAERS Safety Report 13752514 (Version 3)
Quarter: 2018Q1

REPORT INFORMATION
  Report Type: Spontaneous
  Country: SI (occurrence: SI)
  Receive Date: 20170713
  Receipt Date: 20180308
  Transmission Date: 20180508
  Serious: Yes (Other)
  Sender: FDA-Public Use
  Company Number: SI-ABBVIE-17P-260-2032152-00

PATIENT
  Age: 55 Year
  Sex: Female

DRUGS (4)
  1. PARICALCITOL. [Suspect]
     Active Substance: PARICALCITOL
     Indication: PROTEINURIA
     Route: 065
  2. PARICALCITOL. [Suspect]
     Active Substance: PARICALCITOL
     Route: 065
  3. PARICALCITOL. [Suspect]
     Active Substance: PARICALCITOL
     Route: 065
     Dates: end: 201411
  4. AGALSIDASE ALFA [Concomitant]
     Active Substance: AGALSIDASE ALFA
     Indication: PRODUCT USED FOR UNKNOWN INDICATION

REACTIONS (2)
  - Renal impairment [Recovered/Resolved]
  - Cardiac disorder [Recovered/Resolved]
